FAERS Safety Report 17015701 (Version 1)
Quarter: 2019Q4

REPORT INFORMATION
  Report Type: Spontaneous
  Country: LB (occurrence: LB)
  Receive Date: 20191111
  Receipt Date: 20191111
  Transmission Date: 20200122
  Serious: Yes (Other)
  Sender: FDA-Public Use
  Company Number: LB-OTONOMY INC.-2019OTO00005

PATIENT
  Sex: Male

DRUGS (1)
  1. CIPROFLOXACIN. [Suspect]
     Active Substance: CIPROFLOXACIN
     Dosage: 5 APPLICATIONS
     Route: 047

REACTIONS (3)
  - Panic attack [Recovered/Resolved]
  - Blindness transient [Recovered/Resolved]
  - Corneal deposits [Recovered/Resolved]
